FAERS Safety Report 24028830 (Version 1)
Quarter: 2024Q2

REPORT INFORMATION
  Report Type: Other
  Country: CN (occurrence: CN)
  Receive Date: 20240628
  Receipt Date: 20240628
  Transmission Date: 20240716
  Serious: Yes (Other)
  Sender: FDA-Public Use
  Company Number: CN-Appco Pharma LLC-2158651

PATIENT
  Age: 39 Year
  Sex: Male

DRUGS (4)
  1. ACETAZOLAMIDE [Suspect]
     Active Substance: ACETAZOLAMIDE
     Indication: Angle closure glaucoma
     Route: 048
  2. CARTEOLOL HYDROCHLORIDE [Suspect]
     Active Substance: CARTEOLOL HYDROCHLORIDE
     Route: 065
  3. BRINZOLAMIDE [Suspect]
     Active Substance: BRINZOLAMIDE
     Route: 065
  4. BRIMONIDINE TARTRATE [Suspect]
     Active Substance: BRIMONIDINE TARTRATE
     Route: 065

REACTIONS (1)
  - Drug ineffective [Unknown]
